FAERS Safety Report 9171244 (Version 1)
Quarter: 2013Q1

REPORT INFORMATION
  Report Type: Spontaneous
  Country: US (occurrence: US)
  Receive Date: 20130319
  Receipt Date: 20130319
  Transmission Date: 20140127
  Serious: Yes (Hospitalization, Other)
  Sender: FDA-Public Use
  Company Number: US-PFIZER INC-2013090394

PATIENT
  Sex: Male
  Weight: 136 kg

DRUGS (2)
  1. LYRICA [Suspect]
     Indication: BACK PAIN
     Dosage: UNK
     Route: 048
  2. EFFEXOR XR [Suspect]
     Dosage: UNK
     Route: 048

REACTIONS (2)
  - Fall [Unknown]
  - Arthropathy [Unknown]
